FAERS Safety Report 7103550-2 (Version None)
Quarter: 2010Q4

REPORT INFORMATION
  Report Type: 
  Country: None (occurrence: None)
  Receive Date: 20101115
  Receipt Date: 20101104
  Transmission Date: 20110411
  Serious: Yes (Hospitalization)
  Sender: FDA-Public Use
  Company Number: US-ASTRAZENECA-2010SE40111

PATIENT
  Age: 748 Month
  Sex: Female
  Weight: 111.1 kg

DRUGS (13)
  1. SEROQUEL [Suspect]
     Indication: SLEEP DISORDER
     Route: 048
  2. SEROQUEL [Suspect]
     Route: 048
  3. SEROQUEL [Suspect]
     Route: 048
  4. SEROQUEL [Suspect]
     Route: 048
  5. SEROQUEL [Suspect]
     Route: 048
  6. SEROQUEL [Suspect]
     Route: 048
  7. SEROQUEL [Suspect]
     Dosage: TWO TABLETS HS
     Route: 048
     Dates: start: 20100823
  8. SEROQUEL [Suspect]
     Dosage: FIVE TABLETS HS
     Route: 048
     Dates: start: 20100824
  9. SEROQUEL [Suspect]
     Dosage: TOOK ABOUT EVERY ONE AND HALF HOURS STARTING AT 8:30PM UNTIL 1:30AM HS
     Route: 048
     Dates: start: 20100825
  10. SEROQUEL [Suspect]
     Route: 048
     Dates: start: 19990101, end: 20101001
  11. SEROQUEL [Suspect]
     Route: 048
     Dates: start: 20101001
  12. LISINOPRIL [Suspect]
     Route: 048
  13. TRAZODONE [Concomitant]
     Indication: SLEEP DISORDER

REACTIONS (15)
  - ANGINA PECTORIS [None]
  - CHEST DISCOMFORT [None]
  - DRUG DOSE OMISSION [None]
  - DRUG INEFFECTIVE [None]
  - DRY EYE [None]
  - DRY MOUTH [None]
  - DYSPNOEA [None]
  - EXPIRED DRUG ADMINISTERED [None]
  - FATIGUE [None]
  - HEADACHE [None]
  - INCORRECT DRUG ADMINISTRATION DURATION [None]
  - INSOMNIA [None]
  - MYOCARDIAL INFARCTION [None]
  - PARAESTHESIA [None]
  - VISION BLURRED [None]
